FAERS Safety Report 8591623-7 (Version None)
Quarter: 2012Q3

REPORT INFORMATION
  Report Type: 
  Country: None (occurrence: None)
  Receive Date: 20120814
  Receipt Date: 20120809
  Transmission Date: 20120928
  Serious: No
  Sender: FDA-Public Use
  Company Number: US-PFIZER INC-2012087304

PATIENT
  Age: 68 Year
  Sex: Male
  Weight: 95.238 kg

DRUGS (9)
  1. SUTENT [Suspect]
     Indication: METASTATIC RENAL CELL CARCINOMA
     Dosage: 50 MG, 42 DAY CYCLE
     Route: 048
     Dates: start: 20120410
  2. LISINOPRIL [Concomitant]
     Dosage: 50 MG, UNK
  3. MULTI-VITAMINS [Concomitant]
  4. ZIAC [Concomitant]
     Dosage: 10MG/12.5MG
  5. LISINOPRIL [Concomitant]
     Dosage: 10 MG, UNK
  6. SUTENT [Suspect]
     Indication: RENAL CELL CARCINOMA
  7. ASCORBIC ACID [Concomitant]
     Dosage: 500 MG, UNK
  8. SUTENT [Suspect]
     Indication: PANCREATIC NEOPLASM
  9. SUTENT [Suspect]
     Indication: LUNG NEOPLASM

REACTIONS (8)
  - NEUROPATHY PERIPHERAL [None]
  - DIARRHOEA [None]
  - BLOOD PRESSURE ABNORMAL [None]
  - NEUTROPHIL COUNT DECREASED [None]
  - WHITE BLOOD CELL COUNT DECREASED [None]
  - ORAL PAIN [None]
  - FAECES DISCOLOURED [None]
  - DYSPEPSIA [None]
